FAERS Safety Report 5952603-0 (Version None)
Quarter: 2008Q4

REPORT INFORMATION
  Report Type: 
  Country: None (occurrence: None)
  Receive Date: 20081027
  Receipt Date: 20080408
  Transmission Date: 20090506
  Serious: Yes (Other)
  Sender: FDA-Public Use
  Company Number: 2008BH003307

PATIENT
  Age: 30 Year
  Sex: Female

DRUGS (6)
  1. DOBUTAMINE HCL [Suspect]
     Indication: CARDIAC INDEX
     Dosage: 2.5 MG; 2X A DAY; IV
     Route: 042
     Dates: start: 20080405, end: 20080405
  2. HYDROCORTISONE [Concomitant]
  3. INSULIN [Concomitant]
  4. REGLAN [Concomitant]
  5. PROPOFOL [Concomitant]
  6. SEPTRA [Concomitant]

REACTIONS (1)
  - BLOOD PRESSURE INCREASED [None]
